FAERS Safety Report 7335867-0 (Version None)
Quarter: 2011Q1

REPORT INFORMATION
  Report Type: 
  Country: None (occurrence: None)
  Receive Date: 20110307
  Receipt Date: 20110225
  Transmission Date: 20110831
  Serious: Yes (Hospitalization)
  Sender: FDA-Public Use
  Company Number: JP-MEDIMMUNE-MEDI-0012764

PATIENT
  Age: 4 Month

DRUGS (1)
  1. SYNAGIS [Suspect]

REACTIONS (2)
  - NO THERAPEUTIC RESPONSE [None]
  - RESPIRATORY SYNCYTIAL VIRUS INFECTION [None]
